FAERS Safety Report 4342290-X (Version None)
Quarter: 2004Q2

REPORT INFORMATION
  Report Type: 
  Country: None (occurrence: None)
  Receive Date: 20040415
  Receipt Date: 20040331
  Transmission Date: 20050107
  Serious: Yes (Death, Life-Threatening, Other)
  Sender: FDA-Public Use
  Company Number: 204514

PATIENT
  Age: 8 Year
  Sex: Male
  Weight: 23.6 kg

DRUGS (1)
  1. NUTROPIN [Suspect]
     Indication: GROWTH HORMONE DEFICIENCY
     Dosage: 2.35 MG, 3/WEEK, SUBCUTANEOUS
     Route: 058
     Dates: start: 20010514

REACTIONS (5)
  - BRAIN STEM GLIOMA [None]
  - DYSPHAGIA [None]
  - DYSPHONIA [None]
  - HYDROCEPHALUS [None]
  - PAPILLOEDEMA [None]
